FAERS Safety Report 7555584-1 (Version None)
Quarter: 2011Q2

REPORT INFORMATION
  Report Type: 
  Country: None (occurrence: None)
  Receive Date: 20110617
  Receipt Date: 20071227
  Transmission Date: 20111010
  Serious: Yes (Death, Hospitalization)
  Sender: FDA-Public Use
  Company Number: PHMT2005CA00682

PATIENT
  Sex: Female

DRUGS (7)
  1. LEVOTHYROXINE SODIUM [Concomitant]
  2. APO-AMITRIPTYLINE [Concomitant]
  3. APO-TRIAZIDE [Concomitant]
  4. SANDOSTATIN LAR [Suspect]
     Dosage: 40 MG, EVERY 3 WEEKS
     Route: 030
  5. VITAMIN B-12 [Concomitant]
  6. MULTI-VITAMINS [Concomitant]
  7. SANDOSTATIN LAR [Suspect]
     Indication: CARCINOID TUMOUR
     Dosage: 40 MG IM EVERY 3 WEEKS
     Route: 030
     Dates: start: 20050308, end: 20071205

REACTIONS (3)
  - HEPATIC NEOPLASM [None]
  - NAUSEA [None]
  - DEATH [None]
